FAERS Safety Report 23778980 (Version 1)
Quarter: 2024Q2

REPORT INFORMATION
  Report Type: Spontaneous
  Country: US (occurrence: None)
  Receive Date: 20240424
  Receipt Date: 20240424
  Transmission Date: 20240715
  Serious: Yes (Hospitalization)
  Sender: FDA-Public Use
  Company Number: None

PATIENT
  Age: 78 Year
  Sex: Male
  Weight: 91 kg

DRUGS (1)
  1. AMLODIPINE BESYLATE [Suspect]
     Active Substance: AMLODIPINE BESYLATE
     Indication: Hypertension
     Dosage: 5 MG BID PO?
     Route: 048
     Dates: start: 20240226, end: 20240418

REACTIONS (3)
  - Angioedema [None]
  - Aphasia [None]
  - Dysphagia [None]

NARRATIVE: CASE EVENT DATE: 20240419
